FAERS Safety Report 6284642-7 (Version None)
Quarter: 2009Q3

REPORT INFORMATION
  Report Type: 
  Country: None (occurrence: None)
  Receive Date: 20090723
  Receipt Date: 20090720
  Transmission Date: 20100115
  Serious: Yes (Disabling)
  Sender: FDA-Public Use
  Company Number: 2009AL004689

PATIENT
  Age: 30 Year
  Sex: Male
  Weight: 99.7913 kg

DRUGS (1)
  1. TIZANIDINE HYDROCHLORIDE TABLETS 4 MG (AMIDE) [Suspect]
     Indication: BACK PAIN
     Dosage: 4 MG QD PO
     Route: 048
     Dates: start: 20061125, end: 20080101

REACTIONS (2)
  - EAR PAIN [None]
  - FACIAL PALSY [None]
